FAERS Safety Report 5640547-3 (Version None)
Quarter: 2008Q1

REPORT INFORMATION
  Report Type: 
  Country: None (occurrence: None)
  Receive Date: 20080227
  Receipt Date: 20080219
  Transmission Date: 20080703
  Serious: Yes (Other)
  Sender: FDA-Public Use
  Company Number: PHEH2008US01997

PATIENT
  Sex: Female

DRUGS (1)
  1. FEMARA [Suspect]
     Dates: start: 20071101

REACTIONS (5)
  - ASTHENIA [None]
  - CONVULSION [None]
  - ELECTROENCEPHALOGRAM ABNORMAL [None]
  - FATIGUE [None]
  - FEELING ABNORMAL [None]
